FAERS Safety Report 7622430-7 (Version None)
Quarter: 2011Q3

REPORT INFORMATION
  Report Type: 
  Country: None (occurrence: None)
  Receive Date: 20110718
  Receipt Date: 20110718
  Transmission Date: 20111222
  Serious: Yes (Other)
  Sender: FDA-Public Use
  Company Number: None

PATIENT
  Age: 55 Year
  Sex: Female
  Weight: 62.5964 kg

DRUGS (1)
  1. ALLEGRA ALLERGY [Suspect]
     Dosage: 1 TABLET 1X DAY PO
     Route: 048

REACTIONS (2)
  - PRODUCT PHYSICAL ISSUE [None]
  - PRODUCT PACKAGING ISSUE [None]
